FAERS Safety Report 4447520-1 (Version None)
Quarter: 2004Q3

REPORT INFORMATION
  Report Type: 
  Country: None (occurrence: None)
  Receive Date: 20040823
  Receipt Date: 20040602
  Transmission Date: 20050211
  Serious: No
  Sender: FDA-Public Use
  Company Number: PHEH2004US06030

PATIENT
  Age: 73 Year
  Sex: Female

DRUGS (5)
  1. ZELNORM [Suspect]
     Indication: IRRITABLE BOWEL SYNDROME
     Dosage: 6 MG, BID, ORAL
     Route: 048
     Dates: start: 20040601
  2. LORAZEPAM [Concomitant]
  3. AMITRIPTYLINE HCL [Concomitant]
  4. NEXIUM [Concomitant]
  5. DARVOCET [Concomitant]

REACTIONS (2)
  - SPEECH DISORDER [None]
  - TONGUE BLISTERING [None]
